FAERS Safety Report 16201673 (Version 5)
Quarter: 2019Q3

REPORT INFORMATION
  Report Type: Spontaneous
  Country: JP (occurrence: JP)
  Receive Date: 20190416
  Receipt Date: 20190904
  Transmission Date: 20191004
  Serious: Yes (Death, Life-Threatening, Hospitalization, Other)
  Sender: FDA-Public Use
  Company Number: JP-009507513-1904JPN000942J

PATIENT
  Age: 68 Year
  Sex: Male
  Weight: 51 kg

DRUGS (13)
  1. TAKECAB [Concomitant]
     Active Substance: VONOPRAZAN FUMURATE
     Indication: GASTRIC ULCER
     Dosage: 1 DOSAGE FORM, QD
     Route: 048
     Dates: end: 20190417
  2. MAGMITT [Concomitant]
     Active Substance: MAGNESIUM OXIDE
     Indication: CONSTIPATION
     Dosage: 1 DOSAGE FORM, TID
     Route: 048
     Dates: end: 20190417
  3. GASLON [Concomitant]
     Active Substance: IRSOGLADINE MALEATE
     Indication: GASTRIC ULCER
     Dosage: 1 DOSAGE FORM, BID
     Route: 048
     Dates: end: 20190417
  4. OXINORM [Concomitant]
     Indication: CANCER PAIN
     Dosage: 0.5 GRAM, QD
     Route: 048
     Dates: end: 20190417
  5. CISPLATIN. [Suspect]
     Active Substance: CISPLATIN
     Indication: NON-SMALL CELL LUNG CANCER
     Dosage: 120 MILLIGRAM, Q3W
     Route: 041
     Dates: start: 20190213, end: 20190328
  6. KEYTRUDA [Suspect]
     Active Substance: PEMBROLIZUMAB
     Indication: NON-SMALL CELL LUNG CANCER
     Dosage: 200 MILLIGRAM, Q3W
     Route: 041
     Dates: start: 20190213, end: 20190328
  7. ETODOLAC. [Concomitant]
     Active Substance: ETODOLAC
     Indication: CANCER PAIN
     Dosage: 200 MILLIGRAM, BID
     Route: 048
     Dates: end: 20190417
  8. REZALTAS [Concomitant]
     Active Substance: AZELNIDIPINE\OLMESARTAN MEDOXOMIL
     Indication: HYPERTENSION
     Dosage: 1 DOSAGE FORM, QD
     Route: 048
     Dates: end: 20190417
  9. OXYCODONE [Concomitant]
     Active Substance: OXYCODONE
     Indication: CANCER PAIN
     Dosage: 1 DOSAGE FORM, BID
     Route: 048
     Dates: end: 20190417
  10. LOXOPROFEN [Concomitant]
     Active Substance: LOXOPROFEN
     Indication: CANCER PAIN
     Dosage: 1 DOSAGE FORM, TID
     Route: 048
     Dates: end: 20190417
  11. PANVITAN [Concomitant]
     Active Substance: VITAMINS
     Dosage: 1 GRAM, QD
     Route: 048
     Dates: end: 20190417
  12. PEMETREXED DISODIUM [Suspect]
     Active Substance: PEMETREXED DISODIUM
     Indication: NON-SMALL CELL LUNG CANCER
     Dosage: 800 MILLIGRAM, Q3W
     Route: 041
     Dates: start: 20190213, end: 20190328
  13. NOVAMIN [Concomitant]
     Indication: VOMITING
     Dosage: 1 DOSAGE FORM, TID
     Route: 048
     Dates: end: 20190417

REACTIONS (8)
  - Enteritis [Unknown]
  - Hepatic function abnormal [Recovering/Resolving]
  - Diarrhoea [Recovered/Resolved]
  - Renal impairment [Recovered/Resolved]
  - Cardiac failure congestive [Fatal]
  - Thrombocytopenia [Not Recovered/Not Resolved]
  - Colitis [Unknown]
  - Anaemia [Recovering/Resolving]

NARRATIVE: CASE EVENT DATE: 20190305
